FAERS Safety Report 14981366 (Version 2)
Quarter: 2018Q2

REPORT INFORMATION
  Report Type: Spontaneous
  Country: IT (occurrence: IT)
  Receive Date: 20180606
  Receipt Date: 20180619
  Transmission Date: 20180711
  Serious: Yes (Hospitalization)
  Sender: FDA-Public Use
  Company Number: IT-OTSUKA-2018_013993

PATIENT
  Age: 21 Year
  Sex: Female

DRUGS (5)
  1. ALPRAZOLAM. [Suspect]
     Active Substance: ALPRAZOLAM
     Indication: INTENTIONAL SELF-INJURY
     Dosage: 15 ML, UNK
     Route: 048
     Dates: start: 20180126, end: 20180126
  2. ZITROMAX [Suspect]
     Active Substance: AZITHROMYCIN
     Indication: INTENTIONAL SELF-INJURY
     Dosage: 1500 MG, UNK
     Route: 048
     Dates: start: 20180126, end: 20180126
  3. ESCITALOPRAM OXALATE. [Suspect]
     Active Substance: ESCITALOPRAM OXALATE
     Indication: INTENTIONAL SELF-INJURY
     Dosage: 140 MG, UNK
     Route: 048
     Dates: start: 20180126, end: 20180126
  4. ARIPIPRAZOLE. [Suspect]
     Active Substance: ARIPIPRAZOLE
     Indication: INTENTIONAL SELF-INJURY
     Dosage: 210 MG, UNK
     Route: 048
     Dates: start: 20180126, end: 20180126
  5. PROZIN (CHLORPROMAZINE HYDROCHLORIDE) [Suspect]
     Active Substance: CHLORPROMAZINE HYDROCHLORIDE
     Indication: INTENTIONAL SELF-INJURY
     Dosage: 1200 MG, UNK
     Route: 048
     Dates: start: 20180126, end: 20180126

REACTIONS (7)
  - Prescribed overdose [Unknown]
  - Product use in unapproved indication [Unknown]
  - Intentional self-injury [None]
  - Sopor [Recovering/Resolving]
  - Accidental exposure to product [Unknown]
  - Partner stress [None]
  - Drug administration error [None]

NARRATIVE: CASE EVENT DATE: 20180126
